FAERS Safety Report 24174614 (Version 1)
Quarter: 2024Q3

REPORT INFORMATION
  Report Type: Spontaneous
  Country: IT (occurrence: IT)
  Receive Date: 20240805
  Receipt Date: 20240805
  Transmission Date: 20241017
  Serious: Yes (Life-Threatening, Hospitalization, Other)
  Sender: BRACCO
  Company Number: None

PATIENT
  Age: 74 Year
  Sex: Male

DRUGS (3)
  1. SULFUR HEXAFLUORIDE [Suspect]
     Active Substance: SULFUR HEXAFLUORIDE
     Indication: Aortic aneurysm repair
     Dosage: SINGLE ADMINISTRATION OF  2.5 ML IV.
     Route: 042
     Dates: start: 20240716, end: 20240716
  2. SULFUR HEXAFLUORIDE [Suspect]
     Active Substance: SULFUR HEXAFLUORIDE
     Indication: Aortic aneurysm repair
     Dosage: SINGLE ADMINISTRATION OF  2.5 ML IV.
     Route: 042
     Dates: start: 20240716, end: 20240716
  3. SULFUR HEXAFLUORIDE [Suspect]
     Active Substance: SULFUR HEXAFLUORIDE
     Indication: Aortic aneurysm repair
     Dosage: SINGLE ADMINISTRATION OF  2.5 ML IV.
     Route: 042
     Dates: start: 20240716, end: 20240716

REACTIONS (1)
  - Laryngeal oedema [Recovered/Resolved]

NARRATIVE: CASE EVENT DATE: 20240716
